FAERS Safety Report 17658600 (Version 3)
Quarter: 2020Q2

REPORT INFORMATION
  Report Type: Report from Study
  Country: US (occurrence: US)
  Receive Date: 20200412
  Receipt Date: 20200505
  Transmission Date: 20200713
  Serious: No
  Sender: FDA-Public Use
  Company Number: US-SA-2020SA092441

PATIENT
  Age: 89 Year
  Sex: Female

DRUGS (2)
  1. DUPILUMAB [Suspect]
     Active Substance: DUPILUMAB
     Dosage: 300 MG, QOW
     Route: 058
     Dates: start: 2020
  2. DUPILUMAB [Suspect]
     Active Substance: DUPILUMAB
     Indication: DERMATITIS ATOPIC
     Dosage: 600 MG, 1X
     Route: 058
     Dates: start: 20200303, end: 20200303

REACTIONS (5)
  - Rash [Unknown]
  - Rash [Not Recovered/Not Resolved]
  - Acarodermatitis [Unknown]
  - Erythema [Not Recovered/Not Resolved]
  - Pruritus [Unknown]
